FAERS Safety Report 5657873-4 (Version None)
Quarter: 2008Q1

REPORT INFORMATION
  Report Type: 
  Country: None (occurrence: None)
  Receive Date: 20080310
  Receipt Date: 20080229
  Transmission Date: 20080703
  Serious: Yes (Death, Hospitalization)
  Sender: FDA-Public Use
  Company Number: PHFR2008GB00909

PATIENT
  Age: 51 Year
  Sex: Male

DRUGS (3)
  1. CLOZARIL [Suspect]
     Indication: SCHIZOPHRENIA
     Dosage: 300MG/DAY
     Route: 048
     Dates: start: 20071024
  2. ARIPIPRAZOLE [Concomitant]
     Indication: DEPRESSION
     Dosage: 10MG/DAY
     Route: 048
     Dates: start: 20060701
  3. DULOXETINE [Concomitant]
     Indication: PSYCHOTIC DISORDER
     Dosage: 60 MG/DAY
     Route: 048
     Dates: start: 20071001

REACTIONS (5)
  - DEATH [None]
  - HEPATIC ENCEPHALOPATHY [None]
  - HEPATIC FAILURE [None]
  - LIVER DISORDER [None]
  - LOBAR PNEUMONIA [None]
